FAERS Safety Report 13807674 (Version 1)
Quarter: 2017Q3

REPORT INFORMATION
  Report Type: Spontaneous
  Country: US (occurrence: US)
  Receive Date: 20170728
  Receipt Date: 20170728
  Transmission Date: 20171127
  Serious: No
  Sender: FDA-Public Use
  Company Number: US-ASTRAZENECA-2017SE75998

PATIENT
  Age: 77 Year
  Sex: Female
  Weight: 52.6 kg

DRUGS (4)
  1. SYMBICORT [Suspect]
     Active Substance: BUDESONIDE\FORMOTEROL FUMARATE DIHYDRATE
     Indication: VIRAL UPPER RESPIRATORY TRACT INFECTION
     Dosage: 160/4.5 MCG 2 PUFFS TWICE PER DAY
     Route: 055
     Dates: start: 2015
  2. TUDORZA PRESSAIR [Suspect]
     Active Substance: ACLIDINIUM BROMIDE
     Indication: CHRONIC OBSTRUCTIVE PULMONARY DISEASE
     Dosage: 400 MCG 1 PUFF TWICE PER DAY
     Route: 055
     Dates: start: 2014
  3. VENTOLIN [Concomitant]
     Active Substance: ALBUTEROL SULFATE
     Indication: INHALATION THERAPY
     Dosage: AS REQUIRED
     Route: 055
     Dates: start: 2014
  4. SYMBICORT [Suspect]
     Active Substance: BUDESONIDE\FORMOTEROL FUMARATE DIHYDRATE
     Indication: DYSPNOEA
     Dosage: 160/4.5 MCG 2 PUFFS TWICE PER DAY
     Route: 055
     Dates: start: 2015

REACTIONS (7)
  - Dyspnoea exertional [Unknown]
  - Product use in unapproved indication [Unknown]
  - Drug dose omission [Unknown]
  - Device malfunction [Unknown]
  - Intentional device misuse [Unknown]
  - Underdose [Unknown]
  - Off label use [Unknown]

NARRATIVE: CASE EVENT DATE: 2015
